FAERS Safety Report 5782756-9 (Version None)
Quarter: 2008Q2

REPORT INFORMATION
  Report Type: 
  Country: None (occurrence: None)
  Receive Date: 20080619
  Receipt Date: 20080619
  Transmission Date: 20081010
  Serious: Yes (Other)
  Sender: FDA-Public Use
  Company Number: None

PATIENT
  Sex: Female
  Weight: 67.1324 kg

DRUGS (1)
  1. AVELOX [Suspect]
     Indication: NASAL CONGESTION
     Dosage: 1 TAB. 1 DAY ORAL
     Route: 048
     Dates: start: 20080429, end: 20080502

REACTIONS (1)
  - CONSTIPATION [None]
